FAERS Safety Report 25534164 (Version 1)
Quarter: 2025Q3

REPORT INFORMATION
  Report Type: Spontaneous
  Country: EU (occurrence: EU)
  Receive Date: 20250709
  Receipt Date: 20250709
  Transmission Date: 20251021
  Serious: Yes (Other)
  Sender: AUROBINDO
  Company Number: EU-TEVA-2019-IT-1029904

PATIENT
  Age: 48 Year
  Sex: Male

DRUGS (5)
  1. FUROSEMIDE [Suspect]
     Active Substance: FUROSEMIDE
     Indication: Hyperparathyroidism primary
     Route: 065
  2. PREDNISONE [Suspect]
     Active Substance: PREDNISONE
     Indication: Hyperparathyroidism primary
     Route: 048
  3. SALINE [Suspect]
     Active Substance: SODIUM CHLORIDE
     Indication: Hyperparathyroidism primary
     Route: 042
  4. CINACALCET [Concomitant]
     Active Substance: CINACALCET
     Indication: Hypercalcaemia
     Dosage: 60 MILLIGRAM, ONCE A DAY
     Route: 065
  5. CINACALCET [Concomitant]
     Active Substance: CINACALCET
     Dosage: 120 MILLIGRAM, ONCE A DAY
     Route: 065

REACTIONS (1)
  - Drug ineffective [Unknown]
